FAERS Safety Report 5363471-2 (Version None)
Quarter: 2007Q2

REPORT INFORMATION
  Report Type: 
  Country: None (occurrence: None)
  Receive Date: 20070620
  Receipt Date: 20070611
  Transmission Date: 20071010
  Serious: Yes (Other)
  Sender: FDA-Public Use
  Company Number: BR-ROCHE-501771

PATIENT
  Age: 17 Year
  Sex: Male

DRUGS (1)
  1. ISOTRETINOIN [Suspect]
     Indication: ACNE
     Dosage: STOP DATE FOR TREATMENT REPORTED AS AN UNSPECIFIED DATE IN JUNE 2007.
     Route: 048
     Dates: start: 20070501

REACTIONS (5)
  - CRYING [None]
  - DELUSION [None]
  - DIZZINESS [None]
  - HEADACHE [None]
  - IRRITABILITY [None]
